FAERS Safety Report 16716902 (Version 1)
Quarter: 2019Q3

REPORT INFORMATION
  Report Type: Spontaneous
  Country: US (occurrence: US)
  Receive Date: 20190819
  Receipt Date: 20190819
  Transmission Date: 20191005
  Serious: No
  Sender: FDA-Public Use
  Company Number: US-009507513-1908USA000374

PATIENT
  Age: 19 Year
  Sex: Female
  Weight: 111.11 kg

DRUGS (4)
  1. NEXPLANON [Suspect]
     Active Substance: ETONOGESTREL
     Indication: MENSTRUATION IRREGULAR
  2. NEXPLANON [Suspect]
     Active Substance: ETONOGESTREL
     Indication: MENORRHAGIA
     Dosage: 68 MG / EVERY 3 YEARS
     Route: 059
     Dates: start: 20170821
  3. TYLENOL [Concomitant]
     Active Substance: ACETAMINOPHEN
     Dosage: AS NEEDED
  4. NEXPLANON [Suspect]
     Active Substance: ETONOGESTREL
     Indication: CONTRACEPTION

REACTIONS (14)
  - Wrong technique in product usage process [Unknown]
  - Amenorrhoea [Recovered/Resolved]
  - Thyroid disorder [Not Recovered/Not Resolved]
  - Implant site pain [Recovered/Resolved]
  - Device difficult to use [Recovered/Resolved]
  - Implant site pain [Recovered/Resolved]
  - Muscle spasms [Not Recovered/Not Resolved]
  - Product use in unapproved indication [Unknown]
  - Menstruation delayed [Recovered/Resolved]
  - Mood swings [Not Recovered/Not Resolved]
  - Menorrhagia [Recovered/Resolved]
  - Menorrhagia [Not Recovered/Not Resolved]
  - Incorrect product administration duration [Unknown]
  - Implant site bruising [Not Recovered/Not Resolved]

NARRATIVE: CASE EVENT DATE: 20170821
